FAERS Safety Report 24026935 (Version 1)
Quarter: 2024Q2

REPORT INFORMATION
  Report Type: Report from Study
  Country: GB (occurrence: GB)
  Receive Date: 20240628
  Receipt Date: 20240628
  Transmission Date: 20240715
  Serious: Yes (Other)
  Sender: FDA-Public Use
  Company Number: GB-Accord-431816

PATIENT
  Sex: Male

DRUGS (4)
  1. CARBOPLATIN [Suspect]
     Active Substance: CARBOPLATIN
     Indication: Retinoblastoma
     Dosage: FIRST THREE CYCLES
  2. AMIKACIN [Suspect]
     Active Substance: AMIKACIN
     Indication: Bacteraemia
  3. ETOPOSIDE [Concomitant]
     Active Substance: ETOPOSIDE
     Indication: Retinoblastoma
  4. VINCRISTINE [Concomitant]
     Active Substance: VINCRISTINE
     Indication: Retinoblastoma

REACTIONS (3)
  - Ototoxicity [Unknown]
  - Bacteraemia [Unknown]
  - Off label use [Unknown]
